FAERS Safety Report 6869539-3 (Version None)
Quarter: 2010Q3

REPORT INFORMATION
  Report Type: 
  Country: None (occurrence: None)
  Receive Date: 20100721
  Receipt Date: 20100708
  Transmission Date: 20110219
  Serious: Yes (Life-Threatening)
  Sender: FDA-Public Use
  Company Number: 2010P1000229

PATIENT
  Age: 59 Year
  Sex: Male

DRUGS (3)
  1. ULTIVA [Suspect]
     Indication: SURGERY
     Dosage: 0.1 MCG/KG;
  2. MIDAZOLAM (NO PREF. NAME) [Suspect]
     Indication: SURGERY
     Dosage: 1.5 MG;X1
  3. PROPOFOL [Suspect]
     Indication: SURGERY
     Dosage: 1 MG/KG/HR; 50 MG;X1

REACTIONS (5)
  - DECEREBRATION [None]
  - DISCOMFORT [None]
  - HYPERTENSION [None]
  - HYPOXIA [None]
  - INFUSION RELATED REACTION [None]
